FAERS Safety Report 8717856 (Version 7)
Quarter: 2012Q4

REPORT INFORMATION
  Report Type: 
  Country: CA (occurrence: CA)
  Receive Date: 20120810
  Receipt Date: 20121030
  Transmission Date: 20130627
  Serious: Yes (Other)
  Sender: FDA-Public Use
  Company Number: CA-ROCHE-1098214

PATIENT
  Age: 48 Year
  Sex: Male

DRUGS (4)
  1. XOLAIR [Suspect]
     Indication: ASTHMA
     Route: 058
     Dates: start: 20120306
  2. SYMBICORT [Concomitant]
  3. VENTOLIN [Concomitant]
  4. PREDNISONE [Concomitant]

REACTIONS (19)
  - Pulmonary function test abnormal [Unknown]
  - Calcinosis [Unknown]
  - Malaise [Unknown]
  - Oropharyngeal pain [Unknown]
  - Insomnia [Unknown]
  - Pain [Unknown]
  - Muscle spasms [Unknown]
  - Food poisoning [Unknown]
  - Wheezing [Unknown]
  - Dyspnoea [Unknown]
  - Chest discomfort [Unknown]
  - Myalgia [Unknown]
  - Headache [Unknown]
  - Dizziness [Unknown]
  - Fatigue [Unknown]
  - Rash [Unknown]
  - Multiple allergies [Unknown]
  - Pain in extremity [Unknown]
  - Drug ineffective [Unknown]
